FAERS Safety Report 5866844-4 (Version None)
Quarter: 2008Q3

REPORT INFORMATION
  Report Type: 
  Country: None (occurrence: None)
  Receive Date: 20080902
  Receipt Date: 20080820
  Transmission Date: 20090109
  Serious: Yes (Other)
  Sender: FDA-Public Use
  Company Number: US-JNJFOC-20080804946

PATIENT
  Sex: Female

DRUGS (4)
  1. ASPIRIN [Suspect]
     Dosage: 81MG EVERY OTHER DAY
     Route: 048
  2. ASPIRIN [Suspect]
     Indication: DRUG USE FOR UNKNOWN INDICATION
     Route: 048
  3. PLAVIX [Suspect]
     Indication: STENT PLACEMENT
     Route: 048
  4. LISINOPRIL [Concomitant]

REACTIONS (3)
  - CONTUSION [None]
  - HAEMORRHAGE [None]
  - PAIN [None]
